FAERS Safety Report 18049533 (Version 1)
Quarter: 2020Q3

REPORT INFORMATION
  Report Type: Spontaneous
  Country: US (occurrence: US)
  Receive Date: 20200721
  Receipt Date: 20200721
  Transmission Date: 20201103
  Serious: No
  Sender: FDA-Public Use
  Company Number: US-SA-2020SA186852

PATIENT

DRUGS (7)
  1. TYLENOL [Concomitant]
     Active Substance: ACETAMINOPHEN
  2. AMBIEN [Concomitant]
     Active Substance: ZOLPIDEM TARTRATE
  3. KEVZARA [Suspect]
     Active Substance: SARILUMAB
     Indication: RHEUMATOID ARTHRITIS
     Dosage: 1.14 ML, QOW
     Route: 058
     Dates: start: 20200623
  4. NAPROXEN. [Concomitant]
     Active Substance: NAPROXEN
  5. SYNTHROID [Concomitant]
     Active Substance: LEVOTHYROXINE SODIUM
  6. LAMICTAL [Concomitant]
     Active Substance: LAMOTRIGINE
  7. XANAX [Concomitant]
     Active Substance: ALPRAZOLAM

REACTIONS (4)
  - Burning sensation [Unknown]
  - Hyperaesthesia [Unknown]
  - Injection site erythema [Unknown]
  - Pain [Unknown]

NARRATIVE: CASE EVENT DATE: 2020
